FAERS Safety Report 23048234 (Version 2)
Quarter: 2023Q4

REPORT INFORMATION
  Report Type: Spontaneous
  Country: CA (occurrence: CA)
  Receive Date: 20231010
  Receipt Date: 20231130
  Transmission Date: 20240109
  Serious: Yes (Other)
  Sender: FDA-Public Use
  Company Number: CA-CELLTRION INC.-2023CA013905

PATIENT

DRUGS (5)
  1. INFLECTRA [Suspect]
     Active Substance: INFLIXIMAB-DYYB
     Indication: Crohn^s disease
     Dosage: 5 MG/KG, WEEKS 0,2,6 THEN EVERY 8 WEEKS
     Route: 042
     Dates: start: 20230621
  2. INFLECTRA [Suspect]
     Active Substance: INFLIXIMAB-DYYB
     Dosage: 480 MG (5 MG/KG), AFTER 2 WEEKS (WEEK 2)
     Route: 042
     Dates: start: 20230704
  3. INFLECTRA [Suspect]
     Active Substance: INFLIXIMAB-DYYB
     Dosage: 490 MG (5 MG/KG), WEEK 6
     Route: 042
     Dates: start: 20230802
  4. INFLECTRA [Suspect]
     Active Substance: INFLIXIMAB-DYYB
     Dosage: 5 MG/KG, WEEKS 0,2,6 THEN EVERY 8 WEEKS(500 MG, 8 WEEKS)
     Route: 042
     Dates: start: 20230927
  5. PREDNISONE [Concomitant]
     Active Substance: PREDNISONE
     Dosage: 40 MG

REACTIONS (5)
  - Spinal stenosis [Not Recovered/Not Resolved]
  - Condition aggravated [Recovered/Resolved]
  - Fistula [Recovered/Resolved]
  - Dry mouth [Recovered/Resolved]
  - Fatigue [Recovered/Resolved]

NARRATIVE: CASE EVENT DATE: 20230101
